FAERS Safety Report 12137948 (Version 1)
Quarter: 2016Q1

REPORT INFORMATION
  Report Type: Spontaneous
  Country: US (occurrence: US)
  Receive Date: 20160302
  Receipt Date: 20160302
  Transmission Date: 20160526
  Serious: Yes (Death)
  Sender: FDA-Public Use
  Company Number: US-PFIZER INC-2016122140

PATIENT
  Age: 25 Year
  Sex: Female

DRUGS (3)
  1. STREPTOMYCIN [Suspect]
     Active Substance: STREPTOMYCIN\STREPTOMYCIN SULFATE
     Indication: PYELONEPHRITIS
     Dosage: 400 MG, EVERY 3 HOURS
     Dates: start: 194610, end: 194610
  2. INSULIN [Concomitant]
     Active Substance: INSULIN NOS
     Indication: DIABETES MELLITUS
     Dosage: 10 TO 40 UNITS A DAY
  3. STREPTOMYCIN [Suspect]
     Active Substance: STREPTOMYCIN\STREPTOMYCIN SULFATE
     Dosage: UNK
     Dates: start: 194610, end: 194610

REACTIONS (1)
  - Toxic encephalopathy [Fatal]
